FAERS Safety Report 17839899 (Version 1)
Quarter: 2020Q2

REPORT INFORMATION
  Report Type: Spontaneous
  Country: US (occurrence: US)
  Receive Date: 20200529
  Receipt Date: 20200529
  Transmission Date: 20200714
  Serious: No
  Sender: FDA-Public Use
  Company Number: US-AKRON, INC.-2084308

PATIENT
  Sex: Female

DRUGS (1)
  1. BETIMOL [Suspect]
     Active Substance: TIMOLOL
     Route: 047

REACTIONS (3)
  - Skin burning sensation [Unknown]
  - Eyelid sensory disorder [Unknown]
  - Eyelids pruritus [Unknown]
